FAERS Safety Report 14798171 (Version 5)
Quarter: 2018Q2

REPORT INFORMATION
  Report Type: Report from Study
  Country: DE (occurrence: DE)
  Receive Date: 20180424
  Receipt Date: 20180619
  Transmission Date: 20180711
  Serious: Yes (Life-Threatening, Hospitalization)
  Sender: FDA-Public Use
  Company Number: DE-ROCHE-2100049

PATIENT
  Age: 58 Year
  Sex: Male
  Weight: 99 kg

DRUGS (8)
  1. VALSARTAN. [Concomitant]
     Active Substance: VALSARTAN
     Route: 048
     Dates: start: 20180126
  2. BRONCHO RETARD [Concomitant]
     Route: 048
     Dates: start: 2007
  3. MONOVO [Concomitant]
     Indication: RASH
     Route: 061
     Dates: start: 20170426
  4. EXCIPIAL (GERMANY) [Concomitant]
     Route: 061
     Dates: start: 20170405
  5. APIDRA [Concomitant]
     Active Substance: INSULIN GLULISINE
     Route: 058
     Dates: start: 20171115
  6. LEIODERM P [Concomitant]
     Indication: WOUND
     Route: 061
     Dates: start: 20180207, end: 20180221
  7. ATEZOLIZUMAB. [Suspect]
     Active Substance: ATEZOLIZUMAB
     Indication: MALIGNANT URINARY TRACT NEOPLASM
     Dosage: MOST RECENT DOSE ATEZOLIZUMAB PRIOR TO AE ONSET ON 07/MAR/2018
     Route: 042
     Dates: start: 20170405
  8. LANTUS [Concomitant]
     Active Substance: INSULIN GLARGINE
     Route: 058
     Dates: start: 20171115

REACTIONS (1)
  - Sarcoidosis [Recovered/Resolved]

NARRATIVE: CASE EVENT DATE: 20180328
